FAERS Safety Report 5397453-1 (Version None)
Quarter: 2007Q3

REPORT INFORMATION
  Report Type: 
  Country: None (occurrence: None)
  Receive Date: 20070726
  Receipt Date: 20070718
  Transmission Date: 20080115
  Serious: Yes (Life-Threatening, Hospitalization)
  Sender: FDA-Public Use
  Company Number: US-BAYER-200711039BCC

PATIENT
  Age: 58 Year
  Sex: Male
  Weight: 100 kg

DRUGS (3)
  1. ALEVE [Suspect]
     Indication: MUSCLE SPASMS
     Dosage: UNIT DOSE: 220 MG
     Route: 048
     Dates: start: 20070311, end: 20070330
  2. LIPITOR [Concomitant]
     Dosage: TOTAL DAILY DOSE: 20 MG  UNIT DOSE: 20 MG
     Route: 048
  3. ASPIRIN [Concomitant]

REACTIONS (7)
  - ANAEMIA [None]
  - DIVERTICULUM [None]
  - GASTROINTESTINAL HAEMORRHAGE [None]
  - HAEMATOCHEZIA [None]
  - INTESTINAL HAEMORRHAGE [None]
  - POLYP [None]
  - RECTAL HAEMORRHAGE [None]
